FAERS Safety Report 10422087 (Version 1)
Quarter: 2014Q3

REPORT INFORMATION
  Report Type: Spontaneous
  Country: US (occurrence: US)
  Receive Date: 20140901
  Receipt Date: 20140901
  Transmission Date: 20150326
  Serious: Yes (Other)
  Sender: FDA-Public Use
  Company Number: US-SA-2014SA004762

PATIENT
  Age: 71 Year
  Sex: Female

DRUGS (2)
  1. AVAPRO [Suspect]
     Active Substance: IRBESARTAN
     Indication: BLOOD PRESSURE
     Dosage: STARTED 10 DAYS AGO
     Route: 048
     Dates: start: 20131230
  2. IRBESARTAN WINTHROP [Suspect]
     Active Substance: IRBESARTAN
     Route: 065

REACTIONS (5)
  - Chest pain [Unknown]
  - Dizziness [Unknown]
  - Drug ineffective [Unknown]
  - Hypertension [Unknown]
  - Peripheral swelling [Unknown]

NARRATIVE: CASE EVENT DATE: 2014
